FAERS Safety Report 21237122 (Version 1)
Quarter: 2022Q3

REPORT INFORMATION
  Report Type: Spontaneous
  Country: US (occurrence: US)
  Receive Date: 20220822
  Receipt Date: 20220822
  Transmission Date: 20221027
  Serious: Yes (Hospitalization, Other)
  Sender: FDA-Public Use
  Company Number: US-IPCA LABORATORIES LIMITED-IPC-2022-US-001142

PATIENT

DRUGS (1)
  1. WARFARIN [Suspect]
     Active Substance: WARFARIN
     Indication: Atrial fibrillation
     Dosage: UNK
     Route: 065

REACTIONS (10)
  - Ankylosing spondylitis [Recovered/Resolved]
  - Lumbar vertebral fracture [Recovered/Resolved]
  - Spinal epidural haematoma [Recovered/Resolved]
  - Thecal sac compression [Recovered/Resolved]
  - Cauda equina syndrome [Recovered/Resolved]
  - Subdural haematoma [Recovered/Resolved]
  - Delirium [Recovered/Resolved]
  - Sleep apnoea syndrome [Recovered/Resolved]
  - Anticoagulation drug level above therapeutic [Recovered/Resolved]
  - Spinal fusion acquired [Recovered/Resolved]
